FAERS Safety Report 5117434-2 (Version None)
Quarter: 2006Q3

REPORT INFORMATION
  Report Type: 
  Country: None (occurrence: None)
  Receive Date: 20060926
  Receipt Date: 20060912
  Transmission Date: 20061208
  Serious: Yes (Other)
  Sender: FDA-Public Use
  Company Number: 8018860

PATIENT
  Age: 14 Year
  Sex: Male

DRUGS (2)
  1. KEPPRA [Suspect]
     Indication: CONVULSION
     Dates: start: 20060801, end: 20060801
  2. KEPPRA [Suspect]
     Indication: CONVULSION
     Dates: start: 20060801, end: 20060801

REACTIONS (1)
  - SCHIZOPHRENIA [None]
